FAERS Safety Report 6516533-8 (Version None)
Quarter: 2009Q4

REPORT INFORMATION
  Report Type: 
  Country: None (occurrence: None)
  Receive Date: 20091223
  Receipt Date: 20091214
  Transmission Date: 20100525
  Serious: Yes (Disabling, Other)
  Sender: FDA-Public Use
  Company Number: US-BAYER-200942762NA

PATIENT
  Sex: Female

DRUGS (4)
  1. MAGNEVIST [Suspect]
     Indication: NUCLEAR MAGNETIC RESONANCE IMAGING
     Dates: start: 20070225, end: 20070225
  2. MAGNEVIST [Suspect]
     Dates: start: 20070327, end: 20070327
  3. OMNISCAN [Suspect]
     Indication: NUCLEAR MAGNETIC RESONANCE IMAGING
     Dates: start: 20070323, end: 20070323
  4. UNSPECIFIED GADOLINIUM-BASED CONTRAST AGENT [Suspect]
     Indication: ANGIOGRAM
     Dates: start: 20070323, end: 20070323

REACTIONS (2)
  - NEPHROGENIC SYSTEMIC FIBROSIS [None]
  - PAIN [None]
